FAERS Safety Report 18644235 (Version 7)
Quarter: 2021Q4

REPORT INFORMATION
  Report Type: Spontaneous
  Country: US (occurrence: US)
  Receive Date: 20201221
  Receipt Date: 20211125
  Transmission Date: 20220304
  Serious: Yes (Disabling, Other)
  Sender: FDA-Public Use
  Company Number: US-PURDUE-USA-2020-0182072

PATIENT
  Age: 53 Year
  Sex: Male

DRUGS (50)
  1. OXYCONTIN [Suspect]
     Active Substance: OXYCODONE HYDROCHLORIDE
     Indication: Pain
     Dosage: 80 MG, UNKNOWN
     Route: 048
     Dates: start: 2001, end: 2009
  2. OXYCONTIN [Suspect]
     Active Substance: OXYCODONE HYDROCHLORIDE
     Indication: Injury
     Dosage: 40 MG, UNKNOWN
     Route: 048
  3. ACETAMINOPHEN\OXYCODONE HYDROCHLORIDE [Suspect]
     Active Substance: ACETAMINOPHEN\OXYCODONE HYDROCHLORIDE
     Indication: Pain
     Dosage: (10-120 MG)
     Route: 048
  4. OXYCODONE HYDROCHLORIDE [Suspect]
     Active Substance: OXYCODONE HYDROCHLORIDE
     Indication: Pain
     Dosage: UNKNOWN
     Route: 048
  5. OXYCODONE HYDROCHLORIDE [Suspect]
     Active Substance: OXYCODONE HYDROCHLORIDE
     Indication: Pain
     Dosage: 30 MG, UNKNOWN
     Route: 048
  6. OXYCODONE HYDROCHLORIDE [Suspect]
     Active Substance: OXYCODONE HYDROCHLORIDE
     Indication: Pain
     Dosage: UNKNOWN
     Route: 065
  7. MS CONTIN [Suspect]
     Active Substance: MORPHINE SULFATE
     Indication: Pain
     Dosage: UNKNOWN
     Route: 048
  8. COCAINE [Suspect]
     Active Substance: COCAINE
     Indication: Product used for unknown indication
     Dosage: UNKNOWN
     Route: 045
  9. HEROIN [Suspect]
     Active Substance: DIAMORPHINE
     Indication: Product used for unknown indication
     Dosage: UNKNOWN
     Route: 045
  10. CANNABIS SATIVA SUBSP. INDICA TOP [Suspect]
     Active Substance: CANNABIS SATIVA SUBSP. INDICA TOP
     Indication: Product used for unknown indication
     Dosage: UNKNOWN
     Route: 065
  11. ROCEPHIN [Concomitant]
     Active Substance: CEFTRIAXONE SODIUM
     Indication: Pyrexia
     Dosage: UNKNOWN
     Route: 065
  12. AMOXICILLIN [Concomitant]
     Active Substance: AMOXICILLIN
     Indication: Lyme disease
     Dosage: UNKNOWN
     Route: 065
  13. MELOXICAM [Concomitant]
     Active Substance: MELOXICAM
     Indication: Product used for unknown indication
     Dosage: 15 MG, UNKNOWN
     Route: 065
  14. KADIAN [Concomitant]
     Active Substance: MORPHINE SULFATE
     Indication: Product used for unknown indication
     Dosage: 20 MG, UNKNOWN
     Route: 065
  15. FLECTOR                            /00372302/ [Concomitant]
     Indication: Product used for unknown indication
     Dosage: UNKNOWN
     Route: 065
  16. ENDOCET [Concomitant]
     Active Substance: ACETAMINOPHEN\OXYCODONE HYDROCHLORIDE
     Indication: Product used for unknown indication
     Dosage: (10-650 MG)
     Route: 065
  17. ARTHROTEC [Concomitant]
     Active Substance: DICLOFENAC SODIUM\MISOPROSTOL
     Indication: Product used for unknown indication
     Dosage: 75 MG, UNKNOWN
     Route: 065
  18. FENTANYL [Concomitant]
     Active Substance: FENTANYL
     Indication: Product used for unknown indication
     Dosage: 75 MCG, UNKNOWN
     Route: 065
  19. AZITHROMYCIN [Concomitant]
     Active Substance: AZITHROMYCIN
     Indication: Product used for unknown indication
     Dosage: 250 MG, UNKNOWN
     Route: 065
  20. ELIDEL [Concomitant]
     Active Substance: PIMECROLIMUS
     Indication: Product used for unknown indication
     Dosage: 1 %, UNKNOWN
     Route: 065
  21. VYTORIN [Concomitant]
     Active Substance: EZETIMIBE\SIMVASTATIN
     Indication: Product used for unknown indication
     Dosage: UNKNOWN
     Route: 065
  22. TOPROL XL [Concomitant]
     Active Substance: METOPROLOL SUCCINATE
     Indication: Product used for unknown indication
     Dosage: 100 MG, UNKNOWN
     Route: 065
  23. ALBUTEROL                          /00139501/ [Concomitant]
     Indication: Product used for unknown indication
     Dosage: 90 MCG, UNKNOWN
     Route: 065
  24. KETEK                              /01548701/ [Concomitant]
     Indication: Product used for unknown indication
     Dosage: 400 MG, UNKNOWN
     Route: 065
  25. ROXICET [Concomitant]
     Active Substance: ACETAMINOPHEN\OXYCODONE HYDROCHLORIDE
     Indication: Product used for unknown indication
     Dosage: UNKNOWN
     Route: 065
  26. PENICILLIN V POTASSIUM [Concomitant]
     Active Substance: PENICILLIN V POTASSIUM
     Indication: Product used for unknown indication
     Dosage: 500 MG, UNKNOWN
     Route: 065
  27. CHLORHEXIDIN                       /00133001/ [Concomitant]
     Indication: Product used for unknown indication
     Dosage: 0.12 %, UNKNOWN
     Route: 065
  28. CIALIS [Concomitant]
     Active Substance: TADALAFIL
     Indication: Product used for unknown indication
     Dosage: 20 MG, UNKNOWN
     Route: 065
  29. BUPRENEX [Concomitant]
     Active Substance: BUPRENORPHINE HYDROCHLORIDE
     Indication: Product used for unknown indication
     Dosage: 0.3 MG/ML, UNKNOWN
     Route: 065
  30. SPIRIVA [Concomitant]
     Active Substance: TIOTROPIUM BROMIDE MONOHYDRATE
     Indication: Product used for unknown indication
     Dosage: 18 MCG, UNKNOWN
     Route: 065
  31. NEXIUM                             /01479302/ [Concomitant]
     Indication: Product used for unknown indication
     Dosage: 40 MG, UNKNOWN
     Route: 065
  32. ADVAIR HFA [Concomitant]
     Active Substance: FLUTICASONE PROPIONATE\SALMETEROL XINAFOATE
     Indication: Product used for unknown indication
     Dosage: UNKNOWN
     Route: 065
  33. STROVITE ONE [Concomitant]
     Active Substance: MINERALS\VITAMINS
     Indication: Product used for unknown indication
     Dosage: UNKNOWN
     Route: 065
  34. ALPRAZOLAM [Concomitant]
     Active Substance: ALPRAZOLAM
     Indication: Product used for unknown indication
     Dosage: 2 MG, UNKNOWN
     Route: 065
  35. OXANDRIN [Concomitant]
     Active Substance: OXANDROLONE
     Indication: Product used for unknown indication
     Dosage: 10 MG, UNKNOWN
     Route: 065
  36. TUSSIONEX PENNKINETIC [Concomitant]
     Active Substance: CHLORPHENIRAMINE\HYDROCODONE
     Indication: Product used for unknown indication
     Dosage: UNKNOWN
     Route: 065
  37. MOBIC [Concomitant]
     Active Substance: MELOXICAM
     Indication: Product used for unknown indication
     Dosage: 15 MG, UNKNOWN
     Route: 065
  38. LAMISIL                            /00992602/ [Concomitant]
     Indication: Product used for unknown indication
     Dosage: 250 MG, UNKNOWN
     Route: 065
  39. ACTIQ [Concomitant]
     Active Substance: FENTANYL CITRATE
     Indication: Product used for unknown indication
     Dosage: 1200 MCG, UNKNOWN
     Route: 065
  40. AMITRIPTYLINE [Concomitant]
     Active Substance: AMITRIPTYLINE
     Indication: Product used for unknown indication
     Dosage: 25 MG, UNKNOWN
     Route: 065
  41. AMITRIPTYLINE [Concomitant]
     Active Substance: AMITRIPTYLINE
     Dosage: UNKNOWN
     Route: 065
  42. PLAVIX [Concomitant]
     Active Substance: CLOPIDOGREL BISULFATE
     Indication: Product used for unknown indication
     Dosage: 75 MG, UNKNOWN
     Route: 065
  43. VALTREX [Concomitant]
     Active Substance: VALACYCLOVIR HYDROCHLORIDE
     Indication: Product used for unknown indication
     Dosage: 500 MG, UNKNOWN
     Route: 065
  44. ZOVIRAX                            /00587301/ [Concomitant]
     Indication: Product used for unknown indication
     Dosage: 5 %, UNKNOWN
     Route: 065
  45. CLOTRIMAZOLE [Concomitant]
     Active Substance: CLOTRIMAZOLE
     Indication: Product used for unknown indication
     Dosage: 1 %, UNKNOWN
     Route: 065
  46. CEPHALEXIN                         /00145501/ [Concomitant]
     Indication: Product used for unknown indication
     Dosage: 500 MG, UNKNOWN
     Route: 065
  47. CEPHALEXIN                         /00145501/ [Concomitant]
     Dosage: UNKNOWN
     Route: 065
  48. ALLEGRA [Concomitant]
     Active Substance: FEXOFENADINE HYDROCHLORIDE
     Indication: Product used for unknown indication
     Dosage: 180 MG, UNKNOWN
     Route: 065
  49. SKELAXIN                           /00611501/ [Concomitant]
     Indication: Product used for unknown indication
     Dosage: 100 MG, UNKNOWN
     Route: 065
  50. KETOROLAC [Concomitant]
     Active Substance: KETOROLAC TROMETHAMINE
     Indication: Product used for unknown indication
     Dosage: 100 MG, UNKNOWN
     Route: 065

REACTIONS (14)
  - Rectal haemorrhage [Unknown]
  - Road traffic accident [Unknown]
  - Loss of consciousness [Unknown]
  - Major depression [Unknown]
  - Drug dependence [Unknown]
  - Drug tolerance increased [Unknown]
  - Decreased appetite [Unknown]
  - Learning disability [Unknown]
  - Irritability [Unknown]
  - Insomnia [Unknown]
  - Lethargy [Unknown]
  - Dyspnoea [Unknown]
  - Dyspepsia [Unknown]
  - Constipation [Unknown]

NARRATIVE: CASE EVENT DATE: 20080611
